FAERS Safety Report 5400032-0 (Version None)
Quarter: 2007Q3

REPORT INFORMATION
  Report Type: 
  Country: None (occurrence: None)
  Receive Date: 20070730
  Receipt Date: 20070719
  Transmission Date: 20080115
  Serious: Yes (Hospitalization)
  Sender: FDA-Public Use
  Company Number: US-AVENTIS-200716710GDDC

PATIENT
  Age: 58 Year
  Sex: Female

DRUGS (5)
  1. METRONIDAZOLE [Suspect]
     Indication: VAGINAL INFECTION
     Dosage: DOSE: UNK
     Route: 067
  2. SERTRALINE [Concomitant]
     Dosage: DOSE: UNK
  3. QUETIAPINE FUMARATE [Concomitant]
     Dosage: DOSE: UNK
  4. LORAZEPAM [Concomitant]
     Dosage: DOSE: UNK
  5. ZOLPIDEM TARTRATE [Concomitant]
     Dosage: DOSE: UNK

REACTIONS (10)
  - ASTHENIA [None]
  - CHEST PAIN [None]
  - CHILLS [None]
  - HAEMATURIA [None]
  - HEADACHE [None]
  - LETHARGY [None]
  - NAUSEA [None]
  - PYREXIA [None]
  - THROMBOTIC THROMBOCYTOPENIC PURPURA [None]
  - VOMITING [None]
